FAERS Safety Report 5589990-1 (Version None)
Quarter: 2008Q1

REPORT INFORMATION
  Report Type: 
  Country: None (occurrence: None)
  Receive Date: 20080114
  Receipt Date: 20080110
  Transmission Date: 20080703
  Serious: Yes (Hospitalization, Other)
  Sender: FDA-Public Use
  Company Number: GB-JNJFOC-20080102557

PATIENT
  Sex: Female
  Weight: 57 kg

DRUGS (11)
  1. INFLIXIMAB [Suspect]
     Indication: RHEUMATOID ARTHRITIS
     Route: 042
  2. PREDNISOLONE [Concomitant]
  3. ADCAL [Concomitant]
  4. COD LIVER OIL [Concomitant]
  5. FOSAMAX [Concomitant]
  6. MELOXICAM [Concomitant]
  7. MIRTAZAPINE [Concomitant]
  8. PARACETAMOL [Concomitant]
  9. VITAMIN B [Concomitant]
  10. ASCORBIC ACID [Concomitant]
  11. ZINC [Concomitant]

REACTIONS (1)
  - SYNOVIAL CYST [None]
